FAERS Safety Report 7487174-3 (Version None)
Quarter: 2011Q2

REPORT INFORMATION
  Report Type: 
  Country: None (occurrence: None)
  Receive Date: 20110510
  Receipt Date: 20110502
  Transmission Date: 20111010
  Serious: Yes (Other)
  Sender: FDA-Public Use
  Company Number: 1000020635

PATIENT
  Age: 56 Year
  Sex: Female

DRUGS (1)
  1. SAVELLA [Suspect]

REACTIONS (1)
  - LUPUS-LIKE SYNDROME [None]
